FAERS Safety Report 12356953 (Version 2)
Quarter: 2016Q2

REPORT INFORMATION
  Report Type: Spontaneous
  Country: US (occurrence: US)
  Receive Date: 20160511
  Receipt Date: 20160517
  Transmission Date: 20160815
  Serious: Yes (Disabling, Other)
  Sender: FDA-Public Use
  Company Number: US-TEVA-659438USA

PATIENT
  Sex: Female
  Weight: 52.21 kg

DRUGS (1)
  1. LETROZOLE. [Suspect]
     Active Substance: LETROZOLE
     Indication: HORMONE SUPPRESSION THERAPY
     Route: 065

REACTIONS (4)
  - Recurrent cancer [Unknown]
  - Blood pressure increased [Unknown]
  - Feeling jittery [Unknown]
  - Nervousness [Unknown]
